FAERS Safety Report 13119149 (Version 1)
Quarter: 2017Q1

REPORT INFORMATION
  Report Type: Spontaneous
  Country: ES (occurrence: ES)
  Receive Date: 20170116
  Receipt Date: 20170116
  Transmission Date: 20170428
  Serious: Yes (Hospitalization, Other)
  Sender: FDA-Public Use
  Company Number: ES-PURDUE PHARMA-CAN-2017-0007330

PATIENT
  Age: 14 Year
  Sex: Male

DRUGS (2)
  1. SERTRALINE [Interacting]
     Active Substance: SERTRALINE HYDROCHLORIDE
     Indication: DEPRESSION
     Dosage: 10 MG, DAILY
     Route: 065
  2. NON-PMN METHYLPHENIDATE HYDROCHLORIDE [Suspect]
     Active Substance: METHYLPHENIDATE HYDROCHLORIDE
     Indication: ATTENTION DEFICIT/HYPERACTIVITY DISORDER
     Dosage: 54 MG, DAILY
     Route: 065

REACTIONS (4)
  - Generalised tonic-clonic seizure [Unknown]
  - Amnesia [Unknown]
  - Somnolence [Unknown]
  - Drug interaction [Unknown]
